FAERS Safety Report 4337379-5 (Version None)
Quarter: 2004Q2

REPORT INFORMATION
  Report Type: 
  Country: None (occurrence: None)
  Receive Date: 20040407
  Receipt Date: 20040317
  Transmission Date: 20050107
  Serious: Yes (Other)
  Sender: FDA-Public Use
  Company Number: CA_040306783

PATIENT
  Age: 19 Year
  Sex: Male

DRUGS (2)
  1. NPH ILETIN II (PORK) [Suspect]
  2. REGULAR INSULIN [Suspect]

REACTIONS (4)
  - BLOOD GLUCOSE INCREASED [None]
  - COMA [None]
  - DRUG INEFFECTIVE [None]
  - PHARMACEUTICAL PRODUCT COMPLAINT [None]
